FAERS Safety Report 7230393-1 (Version None)
Quarter: 2011Q1

REPORT INFORMATION
  Report Type: 
  Country: None (occurrence: None)
  Receive Date: 20110118
  Receipt Date: 20110110
  Transmission Date: 20110831
  Serious: Yes (Hospitalization, Disabling, Other)
  Sender: FDA-Public Use
  Company Number: US-JNJFOC-20060204532

PATIENT
  Sex: Female
  Weight: 92.2 kg

DRUGS (34)
  1. REMICADE [Suspect]
     Route: 042
  2. ZOLOFT [Concomitant]
  3. TYLENOL [Concomitant]
     Route: 048
  4. REMICADE [Suspect]
     Dosage: ^HIGHER DOSE PRESCRIBED^
     Route: 042
  5. MIRAPEX [Concomitant]
     Indication: RESTLESS LEGS SYNDROME
  6. ALBUTEROL [Concomitant]
     Dosage: INHALER
  7. ZYBAN [Concomitant]
  8. COMBIVENT [Concomitant]
  9. FUROSEMIDE [Concomitant]
  10. CLONAZEPAM [Concomitant]
  11. PRILOSEC [Concomitant]
  12. CIPRO [Concomitant]
  13. TYLENOL [Concomitant]
     Indication: PREMEDICATION
     Route: 048
  14. TYLENOL [Concomitant]
     Route: 048
  15. REMICADE [Suspect]
     Route: 042
  16. OXYCODONE AND ACETAMINOPHEN [Concomitant]
     Dosage: 5/325
  17. TYLENOL [Concomitant]
     Route: 048
  18. REMICADE [Suspect]
     Indication: RHEUMATOID ARTHRITIS
     Route: 042
  19. MIRAPEX [Concomitant]
  20. ALBUTEROL [Concomitant]
     Dosage: SOLUTION
  21. IBUPROFEN [Concomitant]
  22. PHENAZOPYRIDINE HCL TAB [Concomitant]
  23. CIPRO [Concomitant]
  24. AMOXICILLIN AND CLAVULANATE POTASSIUM [Concomitant]
     Dosage: 500-125 MG
  25. REMICADE [Suspect]
     Route: 042
  26. PREDNISONE [Concomitant]
  27. SULFAMETHOXAZOLE [Concomitant]
  28. DOXYCYCLINE [Concomitant]
  29. BENADRYL [Concomitant]
     Route: 048
  30. BENADRYL [Concomitant]
     Route: 048
  31. MACROBID [Concomitant]
  32. NAPROXEN [Concomitant]
  33. BENADRYL [Concomitant]
     Indication: PREMEDICATION
     Route: 048
  34. BENADRYL [Concomitant]
     Route: 048

REACTIONS (13)
  - CHRONIC OBSTRUCTIVE PULMONARY DISEASE [None]
  - DRUG INEFFECTIVE [None]
  - ANAEMIA [None]
  - SUICIDAL IDEATION [None]
  - FALL [None]
  - NECK PAIN [None]
  - THORACIC OUTLET SYNDROME [None]
  - PYELONEPHRITIS [None]
  - DEMYELINATING POLYNEUROPATHY [None]
  - URINARY TRACT INFECTION [None]
  - TRAUMATIC BRAIN INJURY [None]
  - NEUROGENIC BLADDER [None]
  - GUILLAIN-BARRE SYNDROME [None]
